FAERS Safety Report 4667883-1 (Version None)
Quarter: 2005Q2

REPORT INFORMATION
  Report Type: 
  Country: None (occurrence: None)
  Receive Date: 20050520
  Receipt Date: 20050510
  Transmission Date: 20051028
  Serious: Yes (Hospitalization)
  Sender: FDA-Public Use
  Company Number: CH-SANOFI-SYNTHELABO-F01200500715

PATIENT
  Sex: Male

DRUGS (4)
  1. OXALIPLATIN [Suspect]
     Indication: COLORECTAL CANCER METASTATIC
     Route: 042
     Dates: start: 20050503, end: 20050503
  2. CAPECITABINE [Suspect]
     Dosage: 3000 MG (2 X 1000 MG/M2 PER DAY OF DAYS 1-15, Q3W)
     Route: 048
     Dates: start: 20050503, end: 20050504
  3. CETUXIMAB [Suspect]
     Route: 042
     Dates: start: 20050503, end: 20050503
  4. CIPROXIN [Concomitant]
     Route: 042
     Dates: start: 20050506

REACTIONS (3)
  - DIARRHOEA [None]
  - JAUNDICE [None]
  - PYREXIA [None]
